FAERS Safety Report 6604776-4 (Version None)
Quarter: 2010Q1

REPORT INFORMATION
  Report Type: 
  Country: None (occurrence: None)
  Receive Date: 20100226
  Receipt Date: 20100111
  Transmission Date: 20100710
  Serious: No
  Sender: FDA-Public Use
  Company Number: US-BRISTOL-MYERS SQUIBB COMPANY-14929863

PATIENT
  Sex: Female

DRUGS (3)
  1. ONGLYZA [Suspect]
     Dosage: 1 DOSAGEFORM = 1/2 TABS
  2. METFORMIN HCL [Suspect]
  3. PRANDIN [Suspect]

REACTIONS (1)
  - BLOOD GLUCOSE DECREASED [None]
